FAERS Safety Report 16250703 (Version 1)
Quarter: 2019Q2

REPORT INFORMATION
  Report Type: Spontaneous
  Country: US (occurrence: US)
  Receive Date: 20190429
  Receipt Date: 20190429
  Transmission Date: 20190711
  Serious: No
  Sender: FDA-Public Use
  Company Number: US-XTTRIUM LABORATORIES, INC-2066387

PATIENT
  Sex: Female

DRUGS (1)
  1. CHLORHEXIDINE GLUCONATE. [Suspect]
     Active Substance: CHLORHEXIDINE GLUCONATE
     Indication: GINGIVAL ABSCESS
     Route: 048
     Dates: start: 20181201, end: 20190423

REACTIONS (1)
  - Gingival pain [Unknown]

NARRATIVE: CASE EVENT DATE: 20190423
